FAERS Safety Report 4891844-0 (Version None)
Quarter: 2006Q1

REPORT INFORMATION
  Report Type: 
  Country: None (occurrence: None)
  Receive Date: 20060124
  Receipt Date: 20060124
  Transmission Date: 20060701
  Serious: Yes (Life-Threatening, Hospitalization)
  Sender: FDA-Public Use
  Company Number: None

PATIENT
  Age: 50 Year
  Sex: Male
  Weight: 66.2252 kg

DRUGS (8)
  1. WARFARIN 4 MG [Suspect]
     Indication: ATRIAL FIBRILLATION
     Dosage: 4 MG DAILY PO
     Route: 048
     Dates: start: 20040618, end: 20041110
  2. GATIFLOXACIN [Suspect]
     Indication: CHRONIC OBSTRUCTIVE PULMONARY DISEASE
     Dosage: 400 MG DAILY PO
     Route: 048
     Dates: start: 20041104, end: 20041110
  3. GATIFLOXACIN [Concomitant]
  4. DOXYCYCLINE [Concomitant]
  5. PREDNISONE [Concomitant]
  6. DIGOXIN [Concomitant]
  7. SOTALOL HCL [Concomitant]
  8. RANITIDINE [Concomitant]

REACTIONS (4)
  - ABDOMINAL PAIN [None]
  - HAEMOTHORAX [None]
  - INTERNATIONAL NORMALISED RATIO INCREASED [None]
  - PULMONARY MASS [None]
